FAERS Safety Report 23677494 (Version 1)
Quarter: 2024Q1

REPORT INFORMATION
  Report Type: Spontaneous
  Country: FR (occurrence: FR)
  Receive Date: 20240327
  Receipt Date: 20240327
  Transmission Date: 20240410
  Serious: Yes (Other)
  Sender: FDA-Public Use
  Company Number: None

PATIENT
  Age: 67 Year
  Sex: Male
  Weight: 77 kg

DRUGS (19)
  1. IFOSFAMIDE [Suspect]
     Active Substance: IFOSFAMIDE
     Indication: Liposarcoma
     Dosage: 3250 MG, ONCE A DAY
     Route: 042
     Dates: start: 20240212, end: 20240213
  2. MESNA [Suspect]
     Active Substance: MESNA
     Indication: Prophylaxis
     Dosage: 6000 MG, ONCE A DAY, CYCLIC
     Route: 042
     Dates: start: 20240212, end: 20240213
  3. ALIZAPRIDE [Suspect]
     Active Substance: ALIZAPRIDE
     Dosage: 100 MG
     Route: 065
     Dates: start: 20240212, end: 20240213
  4. LOVENOX [Suspect]
     Active Substance: ENOXAPARIN SODIUM
     Indication: Thrombosis prophylaxis
     Dosage: 4000 IU, ONCE A DAY, STRENGTH: 4000 UI ANTI-XA/0,4 ML, SOLUTION INJECTABLE IN CARTRIDGE
     Route: 058
     Dates: start: 20240212, end: 20240213
  5. METHYLPREDNISOLONE ACETATE [Suspect]
     Active Substance: METHYLPREDNISOLONE ACETATE
     Indication: Chemotherapy side effect prophylaxis
     Dosage: 60 MG, ONCE A DAY
     Route: 048
     Dates: start: 20240212, end: 20240213
  6. ADRIAMYCIN [Suspect]
     Active Substance: DOXORUBICIN HYDROCHLORIDE
     Indication: Liposarcoma
     Dosage: 40 MG, ONCE A DAY, CYCLIC, LYOPHILISATE AND FOR PARENTERAL USE, PERFUSION
     Route: 042
     Dates: start: 20240212, end: 20240213
  7. VITAMIN B1 [Suspect]
     Active Substance: THIAMINE HYDROCHLORIDE
     Indication: Vitamin supplementation
     Dosage: 500 MG
     Route: 048
     Dates: start: 20240212, end: 20240213
  8. VITAMIN B6 [Suspect]
     Active Substance: PYRIDOXINE HYDROCHLORIDE
     Indication: Vitamin supplementation
     Dosage: 500 MG
     Route: 048
     Dates: start: 20240212, end: 20240213
  9. METHYLENE BLUE [Suspect]
     Active Substance: METHYLENE BLUE
     Indication: Encephalopathy
     Dosage: 420 MG, ONCE A DAY
     Route: 042
     Dates: start: 20240215, end: 20240216
  10. METHYLENE BLUE [Suspect]
     Active Substance: METHYLENE BLUE
     Dosage: 360 MG, ONCE A DAY
     Route: 042
     Dates: start: 20240214, end: 20240214
  11. METHYLENE BLUE [Suspect]
     Active Substance: METHYLENE BLUE
     Dosage: 300 MG, ONCE A DAY
     Route: 042
     Dates: start: 20240212, end: 20240213
  12. OLANZAPINE [Suspect]
     Active Substance: OLANZAPINE
     Indication: Prophylaxis of nausea and vomiting
     Dosage: 5 MG
     Route: 048
     Dates: start: 20240212, end: 20240213
  13. ONDANSETRON [Suspect]
     Active Substance: ONDANSETRON
     Indication: Prophylaxis of nausea and vomiting
     Dosage: 8 MG
     Route: 048
     Dates: start: 20240212, end: 20240213
  14. METOCLOPRAMIDE [Suspect]
     Active Substance: METOCLOPRAMIDE
     Indication: Prophylaxis of nausea and vomiting
     Dosage: 10 MG
     Route: 048
     Dates: start: 20240212, end: 20240213
  15. FUROSEMIDE [Suspect]
     Active Substance: FUROSEMIDE
     Indication: Fluid retention
     Dosage: 20 MG, ONCE A DAY
     Route: 048
     Dates: start: 20240212, end: 20240213
  16. CHLORPROMAZINE [Suspect]
     Active Substance: CHLORPROMAZINE
     Indication: Prophylaxis of nausea and vomiting
     Dosage: 25 MG
     Route: 048
     Dates: start: 20240212, end: 20240213
  17. KARDEGIC [Concomitant]
     Active Substance: ASPIRIN DL-LYSINE
     Dosage: 1 DOSAGE FORM, ONCE A DAY, POWDER FOR ORAL [SOLUTION] IN DOSE PACK
     Route: 048
  18. BACTRIM [Concomitant]
     Active Substance: SULFAMETHOXAZOLE\TRIMETHOPRIM
     Dosage: 1 DOSAGE FORM, 3 TIMES A WEEK
     Route: 065
  19. CLOBAZAM [Concomitant]
     Active Substance: CLOBAZAM
     Dosage: 1 DOSAGE FORM, ONCE TOTAL
     Route: 048
     Dates: start: 20240212, end: 20240212

REACTIONS (1)
  - Haemolytic anaemia [Recovered/Resolved]

NARRATIVE: CASE EVENT DATE: 20240220
